FAERS Safety Report 8077684-2 (Version None)
Quarter: 2012Q1

REPORT INFORMATION
  Report Type: 
  Country: None (occurrence: None)
  Receive Date: 20120127
  Receipt Date: 20120120
  Transmission Date: 20120608
  Serious: Yes (Other)
  Sender: FDA-Public Use
  Company Number: US-ABBOTT-12P-163-0895954-00

PATIENT
  Sex: Female

DRUGS (12)
  1. HYDROCHLOROTHIAZIDE [Concomitant]
     Indication: HYPERTENSION
  2. HYDROCODONE BITARTRATE AND ACETAMINOPHEN [Concomitant]
     Indication: PAIN
  3. HUMIRA [Suspect]
     Indication: PSORIASIS
     Dates: start: 20111101
  4. GEMFIBROZIL [Concomitant]
     Indication: BLOOD CHOLESTEROL INCREASED
  5. FISH OIL [Concomitant]
     Indication: SUPPLEMENTATION THERAPY
  6. VICTOZA [Concomitant]
     Indication: DIABETES MELLITUS
     Route: 058
  7. ZIAC [Concomitant]
     Indication: HYPERTENSION
     Dosage: 10/6.25 MILLIGRAMS
  8. MELOXICAM [Concomitant]
     Indication: ARTHRALGIA
  9. FLEXERIL [Concomitant]
     Indication: MYALGIA
  10. CLARITIN-D 24 HOUR [Concomitant]
     Indication: HYPERSENSITIVITY
  11. POTASSIUM CHLORIDE [Concomitant]
     Indication: PRODUCT USED FOR UNKNOWN INDICATION
     Dosage: CR8
  12. FLUOXETINE [Concomitant]
     Indication: DEPRESSION

REACTIONS (5)
  - UPPER RESPIRATORY TRACT INFECTION [None]
  - LYMPH GLAND INFECTION [None]
  - CARDIAC DISORDER [None]
  - HEART VALVE INCOMPETENCE [None]
  - MIDDLE EAR EFFUSION [None]
